FAERS Safety Report 5390109-0 (Version None)
Quarter: 2007Q3

REPORT INFORMATION
  Report Type: 
  Country: None (occurrence: None)
  Receive Date: 20070718
  Receipt Date: 20070713
  Transmission Date: 20080115
  Serious: Yes (Hospitalization)
  Sender: FDA-Public Use
  Company Number: B0477554A

PATIENT
  Age: 63 Year
  Sex: Male

DRUGS (4)
  1. FLUTIDE [Suspect]
     Indication: ASTHMA
     Route: 055
     Dates: start: 19980101
  2. ACDEAM [Concomitant]
     Indication: SPUTUM RETENTION
     Dosage: 270MG PER DAY
     Route: 048
     Dates: start: 19980101
  3. AMLODIN [Concomitant]
     Indication: HYPERTENSION
     Dosage: 2.5MG PER DAY
     Route: 048
  4. SEREVENT [Concomitant]
     Indication: ASTHMA
     Dosage: 50MCG TWICE PER DAY
     Route: 055
     Dates: start: 19980101

REACTIONS (1)
  - OESOPHAGEAL ULCER HAEMORRHAGE [None]
